FAERS Safety Report 13711498 (Version 12)
Quarter: 2020Q1

REPORT INFORMATION
  Report Type: Spontaneous
  Country: CA (occurrence: CA)
  Receive Date: 20170703
  Receipt Date: 20200207
  Transmission Date: 20200409
  Serious: Yes (Other)
  Sender: FDA-Public Use
  Company Number: CA-CELLTRION INC.-2017CA006285

PATIENT

DRUGS (23)
  1. INFLECTRA [Suspect]
     Active Substance: INFLIXIMAB-DYYB
     Dosage: 258 MG, EVERY 8 WEEKS
     Route: 042
     Dates: start: 20190619
  2. VITAMIN B12 [Concomitant]
     Active Substance: CYANOCOBALAMIN
     Dosage: UNK
     Dates: start: 20170512
  3. INFLECTRA [Suspect]
     Active Substance: INFLIXIMAB-DYYB
     Indication: RHEUMATOID ARTHRITIS
     Dosage: 242 MG, EVERY 0, 2, 6 WEEKS, THEN EVERY 8 WEEKS
     Route: 042
     Dates: start: 20170510, end: 20180207
  4. INFLECTRA [Suspect]
     Active Substance: INFLIXIMAB-DYYB
     Dosage: 242 MG, EVERY 0, 2, 6 WEEKS, THEN EVERY 8 WEEKS
     Route: 042
     Dates: end: 20180207
  5. INFLECTRA [Suspect]
     Active Substance: INFLIXIMAB-DYYB
     Dosage: 258 MG, EVERY 8 WEEKS
     Route: 042
     Dates: start: 20190306
  6. INFLECTRA [Suspect]
     Active Substance: INFLIXIMAB-DYYB
     Dosage: 258 MG, EVERY 8 WEEKS
     Route: 042
     Dates: start: 20190814
  7. ELTROXIN [Concomitant]
     Active Substance: LEVOTHYROXINE
     Dosage: 100 UG, 1X/DAY
     Dates: start: 20170620
  8. INFLECTRA [Suspect]
     Active Substance: INFLIXIMAB-DYYB
     Dosage: 242 MG, EVERY 8 WEEKS
     Route: 042
     Dates: start: 20170510, end: 20180207
  9. INFLECTRA [Suspect]
     Active Substance: INFLIXIMAB-DYYB
     Dosage: 258 MG, EVERY 8 WEEKS
     Route: 042
     Dates: start: 20190424
  10. PREDNISONE. [Concomitant]
     Active Substance: PREDNISONE
     Dosage: INTERMITTENTLY WITH VARIABLE DOSING
     Route: 065
  11. SYNTHROID [Concomitant]
     Active Substance: LEVOTHYROXINE SODIUM
     Dosage: 125 UG, 1X/DAY; STOP DATE: 20-JUN-2017
  12. METFORMIN [Concomitant]
     Active Substance: METFORMIN HYDROCHLORIDE
     Dosage: 500 MG, 1X/DAY
     Route: 065
  13. RISEDRONATE [Concomitant]
     Active Substance: RISEDRONATE SODIUM
     Indication: OSTEOPOROSIS
     Dosage: UNK, MONTHLY
     Route: 065
  14. INFLECTRA [Suspect]
     Active Substance: INFLIXIMAB-DYYB
     Dosage: 258 MG, EVERY 8 WEEKS
     Route: 042
     Dates: start: 20190109
  15. PANTOPRAZOLE [Concomitant]
     Active Substance: PANTOPRAZOLE
     Dosage: 40 MG, UNK
     Route: 065
  16. LEFLUNOMIDE. [Concomitant]
     Active Substance: LEFLUNOMIDE
     Dosage: 10 MG, 1X/DAY
     Route: 065
  17. INFLECTRA [Suspect]
     Active Substance: INFLIXIMAB-DYYB
     Dosage: 300 MG, UNK
     Route: 042
     Dates: start: 20171213, end: 20171213
  18. INFLECTRA [Suspect]
     Active Substance: INFLIXIMAB-DYYB
     Dosage: 258 MG, EVERY 8 WEEKS
     Route: 042
     Dates: start: 20180404
  19. INFLECTRA [Suspect]
     Active Substance: INFLIXIMAB-DYYB
     Dosage: 258 MG, EVERY 8 WEEKS
     Route: 042
     Dates: start: 20180724
  20. CALCIUM + VITAMIN D [Concomitant]
     Active Substance: CALCIUM\VITAMIN D
     Dosage: UNK
  21. INFLECTRA [Suspect]
     Active Substance: INFLIXIMAB-DYYB
     Dosage: 258 MG, EVERY 8 WEEKS
     Route: 042
     Dates: start: 20180919
  22. INFLECTRA [Suspect]
     Active Substance: INFLIXIMAB-DYYB
     Dosage: 258 MG, EVERY 8 WEEKS
     Route: 042
     Dates: start: 20181115
  23. INFLECTRA [Suspect]
     Active Substance: INFLIXIMAB-DYYB
     Dosage: 258 MG, EVERY 8 WEEKS
     Route: 042
     Dates: start: 20191204

REACTIONS (16)
  - Therapeutic response shortened [Unknown]
  - Sneezing [Unknown]
  - Cyst [Unknown]
  - Weight increased [Unknown]
  - Fatigue [Recovered/Resolved]
  - Hypertension [Unknown]
  - Lymphocytosis [Unknown]
  - Red cell distribution width increased [Unknown]
  - Peripheral swelling [Unknown]
  - Thyroid mass [Unknown]
  - Blood pressure fluctuation [Unknown]
  - Condition aggravated [Recovered/Resolved]
  - Therapeutic response unexpected [Unknown]
  - Urinary tract infection [Unknown]
  - Incorrect dose administered [Unknown]
  - Nasal congestion [Unknown]

NARRATIVE: CASE EVENT DATE: 20170613
